FAERS Safety Report 4527214-4 (Version None)
Quarter: 2004Q4

REPORT INFORMATION
  Report Type: 
  Country: None (occurrence: None)
  Receive Date: 20041215
  Receipt Date: 20041210
  Transmission Date: 20050328
  Serious: Yes (Life-Threatening)
  Sender: FDA-Public Use
  Company Number: PHFR2004GB04519

PATIENT
  Age: 61 Year
  Sex: Male

DRUGS (5)
  1. DICLOFENAC [Suspect]
     Indication: SPONDYLOSIS
     Dosage: 75MG/DAY
     Route: 048
     Dates: start: 20041010, end: 20041025
  2. ATORVASTATIN [Concomitant]
     Indication: HYPERTENSION
     Dosage: 20MG/DAY
     Route: 048
     Dates: start: 20040301
  3. TILDIEM [Concomitant]
     Indication: HYPERTENSION
     Dosage: 90 MG/DAY
     Route: 048
     Dates: start: 20040301
  4. RAMIPRIL [Concomitant]
     Indication: MYOCARDIAL ISCHAEMIA
     Dosage: 5MG/DAY
     Route: 048
     Dates: start: 20040301
  5. BENDROFLUMETHIAZIDE [Concomitant]
     Dosage: 2.5MG/DAY
     Route: 048
     Dates: start: 20040301

REACTIONS (6)
  - HALLUCINATION, AUDITORY [None]
  - HALLUCINATION, VISUAL [None]
  - HALLUCINATIONS, MIXED [None]
  - PARANOIA [None]
  - PSYCHOTIC DISORDER [None]
  - SUICIDAL IDEATION [None]
